FAERS Safety Report 5652502-8 (Version None)
Quarter: 2008Q1

REPORT INFORMATION
  Report Type: 
  Country: None (occurrence: None)
  Receive Date: 20080306
  Receipt Date: 20080225
  Transmission Date: 20080703
  Serious: Yes (Other)
  Sender: FDA-Public Use
  Company Number: FR-ASTRAZENECA-2008CG00308

PATIENT
  Age: 610 Month
  Sex: Female

DRUGS (3)
  1. RHINOCORT [Suspect]
     Indication: HYPERSENSITIVITY
     Route: 045
     Dates: start: 20070101, end: 20071001
  2. AGREAL [Suspect]
     Indication: HOT FLUSH
     Route: 048
     Dates: start: 20070101, end: 20071001
  3. AERIUS [Concomitant]
     Indication: HYPERSENSITIVITY
     Route: 048
     Dates: start: 20070101, end: 20071001

REACTIONS (3)
  - ANXIETY [None]
  - DEPRESSION [None]
  - TREMOR [None]
